FAERS Safety Report 17153505 (Version 1)
Quarter: 2019Q4

REPORT INFORMATION
  Report Type: Report from Study
  Country: CA (occurrence: CA)
  Receive Date: 20191213
  Receipt Date: 20191213
  Transmission Date: 20200122
  Serious: Yes (Life-Threatening)
  Sender: FDA-Public Use
  Company Number: CA-BIOGEN-2019BI00816252

PATIENT
  Age: 30 Year
  Sex: Female

DRUGS (1)
  1. TECFIDERA [Suspect]
     Active Substance: DIMETHYL FUMARATE
     Indication: MULTIPLE SCLEROSIS
     Dosage: STARTING DOSE
     Route: 048
     Dates: start: 20191121

REACTIONS (7)
  - Dyspnoea [Unknown]
  - Dizziness [Unknown]
  - Fear of eating [Not Recovered/Not Resolved]
  - Pharyngeal swelling [Unknown]
  - Throat tightness [Unknown]
  - Dry throat [Unknown]
  - Fatigue [Unknown]

NARRATIVE: CASE EVENT DATE: 20191205
